FAERS Safety Report 4874113-4 (Version None)
Quarter: 2006Q1

REPORT INFORMATION
  Report Type: 
  Country: None (occurrence: None)
  Receive Date: 20060104
  Receipt Date: 20051221
  Transmission Date: 20060701
  Serious: Yes (Hospitalization, Disabling, Other)
  Sender: FDA-Public Use
  Company Number: 2005172265

PATIENT
  Age: 50 Year
  Sex: Female
  Weight: 58.9676 kg

DRUGS (5)
  1. ZOLOFT [Suspect]
     Indication: DEPRESSION
     Dosage: 200 MG (1 IN 1 D); UNKNOWN
     Dates: start: 19970101
  2. ZOLOFT [Suspect]
     Indication: FIBROMYALGIA
     Dosage: 200 MG (1 IN 1 D); UNKNOWN
     Dates: start: 19970101
  3. SEROQUEL [Concomitant]
  4. PERCOCET [Concomitant]
  5. SOMA [Concomitant]

REACTIONS (11)
  - ABSCESS LIMB [None]
  - CELLULITIS [None]
  - FIBROMYALGIA [None]
  - FLUID RETENTION [None]
  - IMPAIRED WORK ABILITY [None]
  - JOINT SWELLING [None]
  - LIMB CRUSHING INJURY [None]
  - LOWER LIMB FRACTURE [None]
  - OEDEMA PERIPHERAL [None]
  - ROAD TRAFFIC ACCIDENT [None]
  - TREATMENT NONCOMPLIANCE [None]
